FAERS Safety Report 9607692 (Version 1)
Quarter: 2013Q4

REPORT INFORMATION
  Report Type: Report from Study
  Country: CA (occurrence: CA)
  Receive Date: 20131009
  Receipt Date: 20131009
  Transmission Date: 20140711
  Serious: Yes (Other)
  Sender: FDA-Public Use
  Company Number: CA-JNJFOC-20131001079

PATIENT
  Sex: Male
  Weight: 71 kg

DRUGS (3)
  1. REMICADE [Suspect]
     Indication: CROHN^S DISEASE
     Route: 042
     Dates: start: 20130214, end: 20130816
  2. SALAZOPYRIN [Concomitant]
     Route: 048
  3. IMURAN [Concomitant]
     Route: 048

REACTIONS (4)
  - Wound secretion [Not Recovered/Not Resolved]
  - Feeling cold [Unknown]
  - Night sweats [Unknown]
  - Drug ineffective [Unknown]
